FAERS Safety Report 5936358-1 (Version None)
Quarter: 2008Q4

REPORT INFORMATION
  Report Type: 
  Country: None (occurrence: None)
  Receive Date: 20081029
  Receipt Date: 20081029
  Transmission Date: 20090506
  Serious: Yes (Other)
  Sender: FDA-Public Use
  Company Number: None

PATIENT
  Age: 27 Year
  Sex: Female
  Weight: 74.3899 kg

DRUGS (2)
  1. CYMBALTA [Suspect]
     Indication: BIPOLAR DISORDER
     Dosage: 60MG 1XDAY PO
     Route: 048
     Dates: start: 20081001, end: 20081028
  2. CYMBALTA [Suspect]
     Indication: MAJOR DEPRESSION
     Dosage: 60MG 1XDAY PO
     Route: 048
     Dates: start: 20081001, end: 20081028

REACTIONS (9)
  - AGGRESSION [None]
  - AGITATION [None]
  - HEART RATE INCREASED [None]
  - IMPULSIVE BEHAVIOUR [None]
  - INSOMNIA [None]
  - IRRITABILITY [None]
  - JUDGEMENT IMPAIRED [None]
  - MANIA [None]
  - PANIC ATTACK [None]
